FAERS Safety Report 20030737 (Version 1)
Quarter: 2021Q4

REPORT INFORMATION
  Report Type: Spontaneous
  Country: GB (occurrence: GB)
  Receive Date: 20211103
  Receipt Date: 20211103
  Transmission Date: 20220303
  Serious: Yes (Other)
  Sender: FDA-Public Use
  Company Number: None

PATIENT
  Age: 88 Year
  Sex: Male
  Weight: 92 kg

DRUGS (13)
  1. OMEPRAZOLE [Suspect]
     Active Substance: OMEPRAZOLE
     Dosage: 10 MILLIGRAM DAILY; 350 MILLIGRAMS
     Dates: start: 20210910, end: 20211015
  2. CHOLECALCIFEROL [Suspect]
     Active Substance: CHOLECALCIFEROL
     Dosage: TO BE TAKEN EACH MORNING
     Dates: start: 20210122
  3. DILTIAZEM [Suspect]
     Active Substance: DILTIAZEM
     Dosage: 1 DOSAGE FORMS DAILY; IN THE MORNING
     Dates: start: 20201109
  4. HYDROCORTISONE [Suspect]
     Active Substance: HYDROCORTISONE
     Dosage: 2 DOSAGE FORMS DAILY; APPLY SPARINGLY TO THE AFFECTED AREA
     Dates: start: 20211001
  5. RAMIPRIL [Suspect]
     Active Substance: RAMIPRIL
     Indication: Blood pressure measurement
     Dosage: 1 DOSAGE FORMS DAILY;
     Dates: start: 20201015
  6. TAMSULOSIN HYDROCHLORIDE [Suspect]
     Active Substance: TAMSULOSIN HYDROCHLORIDE
     Dosage: 1 DOSAGE FORMS DAILY;
     Dates: start: 20210219
  7. DABIGATRAN ETEXILATE [Suspect]
     Active Substance: DABIGATRAN ETEXILATE
     Dosage: 2 DOSAGE FORMS DAILY; TO THIN BLOOD
     Dates: start: 20201015
  8. CALCIUM CARBONATE\SODIUM ALGINATE\SODIUM BICARBONATE [Suspect]
     Active Substance: CALCIUM CARBONATE\SODIUM ALGINATE\SODIUM BICARBONATE
     Dosage: 40 ML DAILY;
     Dates: start: 20210910
  9. ISOPROPYL MYRISTATE\PARAFFIN [Suspect]
     Active Substance: ISOPROPYL MYRISTATE\PARAFFIN
     Dosage: 1 DOSAGE FORMS DAILY; APPLY
     Dates: start: 20200326
  10. FLUOROURACIL [Suspect]
     Active Substance: FLUOROURACIL
     Dosage: APPLY ONCE TO TWICE DAILY FOR 3-4 WEEKS
     Dates: start: 20211001
  11. NITROGLYCERIN [Suspect]
     Active Substance: NITROGLYCERIN
     Dosage: PUFF, 1 DOSAGE FORMS
     Dates: start: 20200326
  12. ACETAMINOPHEN [Suspect]
     Active Substance: ACETAMINOPHEN
     Dosage: 8 DOSAGE FORMS DAILY;
     Dates: start: 20210122
  13. BENZALKONIUM CHLORIDE\DIMETHICONE\HYDROCORTISONE\NYSTATIN [Suspect]
     Active Substance: BENZALKONIUM CHLORIDE\DIMETHICONE\HYDROCORTISONE\NYSTATIN
     Indication: Skin lesion
     Dosage: 3 DOSAGE FORMS DAILY; APPLY UNTIL THE LESIONS HAVE HEALED,
     Dates: start: 20210910, end: 20210924

REACTIONS (1)
  - Erythema multiforme [Not Recovered/Not Resolved]

NARRATIVE: CASE EVENT DATE: 20211015
